FAERS Safety Report 18160695 (Version 2)
Quarter: 2020Q3

REPORT INFORMATION
  Report Type: Spontaneous
  Country: US (occurrence: US)
  Receive Date: 20200817
  Receipt Date: 20200817
  Transmission Date: 20201103
  Serious: Yes (Other)
  Sender: FDA-Public Use
  Company Number: US-SA-2020SA210725

PATIENT

DRUGS (16)
  1. METHOTREXATE. [Suspect]
     Active Substance: METHOTREXATE
     Indication: PRODUCT USED FOR UNKNOWN INDICATION
     Dosage: UNK
  2. MAGNESIUM HYDROXIDE. [Concomitant]
     Active Substance: MAGNESIUM HYDROXIDE
  3. FOLIC ACID. [Concomitant]
     Active Substance: FOLIC ACID
  4. ARAVA [Suspect]
     Active Substance: LEFLUNOMIDE
     Dosage: UNK
  5. LOSARTAN. [Concomitant]
     Active Substance: LOSARTAN
  6. HUMIRA [Suspect]
     Active Substance: ADALIMUMAB
     Indication: PSORIATIC ARTHROPATHY
     Dosage: 40 MG (1 IN 14 DAYS)
     Route: 058
     Dates: start: 201908
  7. NOVOLOG [Concomitant]
     Active Substance: INSULIN ASPART
  8. RANITIDINE. [Concomitant]
     Active Substance: RANITIDINE
  9. BASAGLAR [Concomitant]
     Active Substance: INSULIN GLARGINE
  10. NEXIUM [Concomitant]
     Active Substance: ESOMEPRAZOLE MAGNESIUM
  11. DULOXETINE. [Concomitant]
     Active Substance: DULOXETINE
  12. CARVEDILOL. [Concomitant]
     Active Substance: CARVEDILOL
  13. AMITRIPTYLINE [Concomitant]
     Active Substance: AMITRIPTYLINE
  14. ASPIRINE [Concomitant]
     Active Substance: ASPIRIN
  15. HUMIRA [Suspect]
     Active Substance: ADALIMUMAB
     Dosage: 40 MG (1 IN 14 DAYS)
     Route: 058
     Dates: end: 20200728
  16. METFORMIN [Concomitant]
     Active Substance: METFORMIN HYDROCHLORIDE

REACTIONS (12)
  - Liver disorder [Unknown]
  - Spleen disorder [Unknown]
  - Hepatic steatosis [Unknown]
  - Fatigue [Not Recovered/Not Resolved]
  - Back pain [Recovered/Resolved]
  - Hepatotoxicity [Unknown]
  - Renal disorder [Unknown]
  - Hepatic enzyme increased [Not Recovered/Not Resolved]
  - Product dose omission issue [Unknown]
  - Weight decreased [Unknown]
  - Decreased appetite [Recovered/Resolved]
  - Abdominal pain upper [Recovered/Resolved]

NARRATIVE: CASE EVENT DATE: 2019
